FAERS Safety Report 4995094-9 (Version None)
Quarter: 2006Q2

REPORT INFORMATION
  Report Type: 
  Country: None (occurrence: None)
  Receive Date: 20060503
  Receipt Date: 20060425
  Transmission Date: 20061013
  Serious: Yes (Hospitalization, Other)
  Sender: FDA-Public Use
  Company Number: 2006053244

PATIENT
  Age: 56 Year
  Sex: Male

DRUGS (1)
  1. BEXTRA [Suspect]
     Indication: PAIN
     Dosage: 10 MG
     Dates: start: 20041105, end: 20041111

REACTIONS (7)
  - DYSPHAGIA [None]
  - ERYTHEMA MULTIFORME [None]
  - HYPERSENSITIVITY [None]
  - PAIN [None]
  - PERIVASCULAR DERMATITIS [None]
  - SCAR [None]
  - STEVENS-JOHNSON SYNDROME [None]
